FAERS Safety Report 15234900 (Version 1)
Quarter: 2018Q3

REPORT INFORMATION
  Report Type: Spontaneous
  Country: GB (occurrence: GB)
  Receive Date: 20180803
  Receipt Date: 20180803
  Transmission Date: 20181010
  Serious: Yes (Other)
  Sender: FDA-Public Use
  Company Number: GB-TEVA-2018-GB-934575

PATIENT
  Age: 57 Year
  Sex: Female

DRUGS (2)
  1. PREDNISOLONE. [Suspect]
     Active Substance: PREDNISOLONE
     Dosage: UNK
     Route: 065
  2. CIPROXIN 500 MG [Suspect]
     Active Substance: CIPROFLOXACIN
     Dosage: UNK
     Route: 065

REACTIONS (1)
  - Tendonitis [Unknown]
